FAERS Safety Report 11628244 (Version 2)
Quarter: 2015Q4

REPORT INFORMATION
  Report Type: Spontaneous
  Country: US (occurrence: US)
  Receive Date: 20151014
  Receipt Date: 20151216
  Transmission Date: 20160304
  Serious: Yes (Other)
  Sender: FDA-Public Use
  Company Number: US-TEVA-596584USA

PATIENT
  Age: 39 Year
  Sex: Female

DRUGS (1)
  1. ZECUITY [Suspect]
     Active Substance: SUMATRIPTAN SUCCINATE
     Route: 062

REACTIONS (6)
  - Application site pruritus [Recovering/Resolving]
  - Application site rash [Recovering/Resolving]
  - Headache [Unknown]
  - Application site urticaria [Recovering/Resolving]
  - Application site burn [Recovering/Resolving]
  - Device battery issue [Unknown]

NARRATIVE: CASE EVENT DATE: 20151024
